FAERS Safety Report 7469865-3 (Version None)
Quarter: 2011Q2

REPORT INFORMATION
  Report Type: 
  Country: None (occurrence: None)
  Receive Date: 20110510
  Receipt Date: 20110503
  Transmission Date: 20111010
  Serious: Yes (Hospitalization, Other)
  Sender: FDA-Public Use
  Company Number: US-SANOFI-AVENTIS-2010SA071377

PATIENT
  Age: 83 Year
  Sex: Male
  Weight: 77 kg

DRUGS (13)
  1. DEXAMETHASONE [Concomitant]
     Dates: start: 20101101, end: 20101101
  2. HYDROCHLOROTHIAZIDE [Concomitant]
     Dates: start: 20101101
  3. DOCETAXEL [Suspect]
     Route: 041
     Dates: start: 20101104, end: 20101104
  4. INVESTIGATIONAL DRUG [Suspect]
     Route: 042
     Dates: start: 20101004, end: 20101004
  5. AMOXICILLIN AND CLAVULANATE POTASSIUM [Concomitant]
     Dates: start: 20101105
  6. DOCETAXEL [Suspect]
     Route: 041
     Dates: start: 20101007, end: 20101007
  7. VALSARTAN [Concomitant]
     Dates: start: 20101105
  8. INVESTIGATIONAL DRUG [Suspect]
     Route: 042
     Dates: start: 20101101, end: 20101101
  9. METOPROLOL SUCCINATE [Concomitant]
  10. LORTAB [Concomitant]
     Dates: start: 20101001
  11. SIMVASTATIN [Concomitant]
     Dates: start: 20100901
  12. ALPRAZOLAM [Concomitant]
     Dates: start: 20100412
  13. NEXIUM [Concomitant]
     Dates: start: 20100412

REACTIONS (4)
  - NEUTROPENIA [None]
  - RENAL FAILURE [None]
  - MENTAL STATUS CHANGES [None]
  - RHABDOMYOLYSIS [None]
